FAERS Safety Report 25484342 (Version 1)
Quarter: 2025Q2

REPORT INFORMATION
  Report Type: Spontaneous
  Country: US (occurrence: US)
  Receive Date: 20250626
  Receipt Date: 20250626
  Transmission Date: 20250717
  Serious: No
  Sender: SANOFI AVENTIS
  Company Number: US-SA-2025SA179572

PATIENT
  Age: 78 Year
  Sex: Male

DRUGS (8)
  1. DUPIXENT [Suspect]
     Active Substance: DUPILUMAB
     Indication: Nasal polyps
     Dosage: 300.000MG QOW
     Route: 058
     Dates: start: 20250228
  2. ASPIRIN [Concomitant]
     Active Substance: ASPIRIN
  3. ATORVASTATIN [Concomitant]
     Active Substance: ATORVASTATIN
  4. KETOROLAC [Concomitant]
     Active Substance: KETOROLAC TROMETHAMINE
  5. LEVETIRACETAM [Concomitant]
     Active Substance: LEVETIRACETAM
  6. PEPCID AC [Concomitant]
     Active Substance: FAMOTIDINE
  7. PREDNISOLONE [Concomitant]
     Active Substance: PREDNISOLONE
  8. TOBRAMYCIN [Concomitant]
     Active Substance: TOBRAMYCIN

REACTIONS (1)
  - Eye irritation [Unknown]

NARRATIVE: CASE EVENT DATE: 20250101
